FAERS Safety Report 5064047-7 (Version None)
Quarter: 2006Q3

REPORT INFORMATION
  Report Type: 
  Country: None (occurrence: None)
  Receive Date: 20060706
  Receipt Date: 20060320
  Transmission Date: 20061208
  Serious: No
  Sender: FDA-Public Use
  Company Number: 200611699BWH

PATIENT
  Age: 56 Year
  Sex: Male

DRUGS (8)
  1. LEVITRA [Suspect]
     Indication: ERECTILE DYSFUNCTION
     Dosage: 10 MG, ONCE, ORAL
     Route: 048
     Dates: start: 20060317
  2. LAMICTAL [Concomitant]
  3. PROPRANOLOL [Concomitant]
  4. PROZAC [Concomitant]
  5. OMEGA 3 FISH OIL [Concomitant]
  6. VITAMIN E [Concomitant]
  7. COENZYME Q10 [Concomitant]
  8. MULTI-VITAMIN [Concomitant]

REACTIONS (1)
  - MIGRAINE [None]
